FAERS Safety Report 12135260 (Version 1)
Quarter: 2016Q1

REPORT INFORMATION
  Report Type: Report from Study
  Country: US (occurrence: US)
  Receive Date: 20160301
  Receipt Date: 20160301
  Transmission Date: 20160526
  Serious: Yes (Other)
  Sender: FDA-Public Use
  Company Number: US-ROCHE-1715872

PATIENT

DRUGS (7)
  1. CAPECITABINE. [Suspect]
     Active Substance: CAPECITABINE
     Indication: COLORECTAL CANCER
     Dosage: DAYS 1-14.
     Route: 048
  2. CAPECITABINE. [Suspect]
     Active Substance: CAPECITABINE
     Dosage: DAYS 1-14.
     Route: 048
  3. IRINOTECAN [Suspect]
     Active Substance: IRINOTECAN
     Route: 042
  4. BEVACIZUMAB [Suspect]
     Active Substance: BEVACIZUMAB
     Indication: COLORECTAL CANCER
     Dosage: OVER 90 MINUTES ON DAY 1
     Route: 042
  5. ABT-751 [Suspect]
     Active Substance: INVESTIGATIONAL PRODUCT
     Indication: COLORECTAL CANCER
     Dosage: DAYS 1-14.
     Route: 048
  6. ABT-751 [Suspect]
     Active Substance: INVESTIGATIONAL PRODUCT
     Dosage: DAYS 1-14.
     Route: 048
  7. IRINOTECAN [Suspect]
     Active Substance: IRINOTECAN
     Indication: COLORECTAL CANCER
     Route: 042

REACTIONS (10)
  - Intestinal obstruction [Unknown]
  - Diarrhoea [Unknown]
  - Rash [Unknown]
  - Hypophosphataemia [Unknown]
  - Neuropathy peripheral [Unknown]
  - Neutropenia [Unknown]
  - Nausea [Unknown]
  - Hyperglycaemia [Unknown]
  - Vomiting [Unknown]
  - Aspartate aminotransferase increased [Unknown]
